FAERS Safety Report 5852691-6 (Version None)
Quarter: 2008Q3

REPORT INFORMATION
  Report Type: 
  Country: None (occurrence: None)
  Receive Date: 20080819
  Receipt Date: 20080812
  Transmission Date: 20090109
  Serious: Yes (Other)
  Sender: FDA-Public Use
  Company Number: CHNY2008JP03077

PATIENT
  Age: 71 Year
  Sex: Female

DRUGS (9)
  1. NICOTINE [Suspect]
     Indication: SMOKING CESSATION THERAPY
     Dosage: 14 MG, QD,  7 MG, QD, TRANSDERMAL
     Route: 062
     Dates: start: 20080701
  2. MICARDIS [Concomitant]
  3. DEPAS (ETIZOLAM) [Concomitant]
  4. SPLENDIL (FELODIPINE) [Concomitant]
  5. LIPITOR [Concomitant]
  6. MAGNESIUM OXIDE (MAGNESIUM OXIDE) [Concomitant]
  7. HALCION [Concomitant]
  8. MYONAL (EPERISONE HYDROCHLORIDE) [Concomitant]
  9. MEDICON (DEXTROMETHORPHAN HYDROBROMIDE) [Concomitant]

REACTIONS (1)
  - BLOOD PRESSURE SYSTOLIC DECREASED [None]
